FAERS Safety Report 9372305 (Version 1)
Quarter: 2013Q2

REPORT INFORMATION
  Report Type: Report from Study
  Country: US (occurrence: US)
  Receive Date: 20130627
  Receipt Date: 20130627
  Transmission Date: 20140414
  Serious: Yes (Death)
  Sender: FDA-Public Use
  Company Number: US-MYLANLABS-2012S1020334

PATIENT
  Age: 30 Year
  Sex: Female

DRUGS (22)
  1. CLOZAPINE TABLETS [Suspect]
     Route: 048
     Dates: start: 20120730
  2. DEPOPROVERA [Concomitant]
     Indication: CONTRACEPTION
     Dosage: EVERY 3 MONTHS
     Route: 030
  3. TRILEPTAL [Concomitant]
  4. SYNTHROID [Concomitant]
  5. SOFTENERS, EMOLLIENTS [Concomitant]
  6. VITAMIN C [Concomitant]
  7. IRON [Concomitant]
  8. DITROPAN [Concomitant]
  9. PROZAC [Concomitant]
  10. KEPPRA [Concomitant]
  11. PRILOSEC [Concomitant]
  12. METFORMIN [Concomitant]
  13. ZOCOR [Concomitant]
  14. LOPID [Concomitant]
  15. ALBUTEROL INHALER [Concomitant]
     Route: 055
  16. ALBUTEROL SULFATE INHALATION SOLUTION [Concomitant]
  17. ATIVAN [Concomitant]
  18. FOLIC ACID [Concomitant]
  19. LORATADINE [Concomitant]
  20. MVI [Concomitant]
  21. VITAMIN D [Concomitant]
  22. ATROVENT [Concomitant]
     Route: 055

REACTIONS (1)
  - Death [Fatal]
